FAERS Safety Report 5531073-0 (Version None)
Quarter: 2007Q4

REPORT INFORMATION
  Report Type: 
  Country: None (occurrence: None)
  Receive Date: 20071130
  Receipt Date: 20071105
  Transmission Date: 20080405
  Serious: No
  Sender: FDA-Public Use
  Company Number: US-BOEHRINGER INGELHEIM PHARMACEUTICALS, INC.-2007-BP-20911BP

PATIENT
  Sex: Female

DRUGS (6)
  1. COMBIVENT [Suspect]
     Indication: CHRONIC OBSTRUCTIVE PULMONARY DISEASE
     Route: 055
     Dates: start: 20030101
  2. ALBUTEROL [Concomitant]
  3. FUROSEMIDE [Concomitant]
  4. TAZTIA [Concomitant]
  5. ACETAZOLAMIDE [Concomitant]
  6. THEOPHYLLINE [Concomitant]

REACTIONS (2)
  - DYSGEUSIA [None]
  - ORAL DISCOMFORT [None]
